FAERS Safety Report 8179977-7 (Version None)
Quarter: 2012Q1

REPORT INFORMATION
  Report Type: 
  Country: None (occurrence: None)
  Receive Date: 20120302
  Receipt Date: 20120221
  Transmission Date: 20120608
  Serious: Yes (Other)
  Sender: FDA-Public Use
  Company Number: IT-BRISTOL-MYERS SQUIBB COMPANY-16411407

PATIENT
  Age: 65 Year
  Sex: Male

DRUGS (1)
  1. COUMADIN [Suspect]

REACTIONS (5)
  - VASCULITIS [None]
  - PARAESTHESIA [None]
  - OEDEMA [None]
  - FATIGUE [None]
  - PARAESTHESIA ORAL [None]
